FAERS Safety Report 22192116 (Version 3)
Quarter: 2023Q4

REPORT INFORMATION
  Report Type: Spontaneous
  Country: IN (occurrence: IN)
  Receive Date: 20230410
  Receipt Date: 20231024
  Transmission Date: 20240109
  Serious: No
  Sender: FDA-Public Use
  Company Number: IN-PFIZER INC-PV202300063124

PATIENT
  Age: 65 Year
  Sex: Male
  Weight: 71.4 kg

DRUGS (3)
  1. DACOMITINIB [Suspect]
     Active Substance: DACOMITINIB
     Indication: Lung adenocarcinoma stage IV
     Dosage: 45 MG
     Route: 048
     Dates: start: 20220606
  2. DACOMITINIB [Suspect]
     Active Substance: DACOMITINIB
     Dosage: 30 MG
     Route: 048
  3. DACOMITINIB [Suspect]
     Active Substance: DACOMITINIB
     Dosage: 30 MG, 1X/DAY
     Route: 048

REACTIONS (13)
  - Blood creatine increased [Unknown]
  - Dyspnoea [Unknown]
  - Chest discomfort [Unknown]
  - Haemoptysis [Unknown]
  - Asthenia [Unknown]
  - Body mass index increased [Unknown]
  - Performance status decreased [Unknown]
  - Pyrexia [Unknown]
  - Drug intolerance [Unknown]
  - Rash [Unknown]
  - Vomiting [Unknown]
  - Diarrhoea [Unknown]
  - Cholelithiasis [Unknown]

NARRATIVE: CASE EVENT DATE: 20220101
